FAERS Safety Report 9959771 (Version 1)
Quarter: 2014Q1

REPORT INFORMATION
  Report Type: Report from Study
  Country: US (occurrence: US)
  Receive Date: 20140305
  Receipt Date: 20140305
  Transmission Date: 20141002
  Serious: No
  Sender: FDA-Public Use
  Company Number: US-ABBVIE-13P-163-1107283-00

PATIENT
  Sex: Female

DRUGS (26)
  1. HUMIRA [Suspect]
     Indication: COLITIS ULCERATIVE
     Route: 058
     Dates: start: 20130301, end: 20130301
  2. HUMIRA [Suspect]
     Route: 058
     Dates: start: 20130315, end: 20130315
  3. HUMIRA [Suspect]
     Route: 058
     Dates: start: 20130329
  4. LIALDA [Concomitant]
     Indication: COLITIS ULCERATIVE
  5. MERCAPTOPURINE [Concomitant]
     Indication: COLITIS ULCERATIVE
     Dosage: 50 MG DAILY
  6. JANUVIA [Concomitant]
     Indication: DIABETES MELLITUS
     Dosage: 100 MG DAILY
  7. METFORMIN [Concomitant]
     Indication: DIABETES MELLITUS
  8. LANTUS [Concomitant]
     Indication: DIABETES MELLITUS
  9. NOVOLOG [Concomitant]
     Indication: DIABETES MELLITUS
     Dosage: SLIDING SCALE, WITH MEALS
  10. AMLODIPINE [Concomitant]
     Indication: HYPERTENSION
     Dosage: 10 MG DAILY
  11. AMLODIPINE [Concomitant]
     Indication: CARDIAC DISORDER
  12. RAMIPRIL [Concomitant]
     Indication: HYPERTENSION
     Dosage: 20 MG DAILY
  13. RAMIPRIL [Concomitant]
     Indication: CARDIAC DISORDER
  14. METOPROLOL [Concomitant]
     Indication: HYPERTENSION
     Dosage: 100 MG DAILY
  15. METOPROLOL [Concomitant]
     Indication: CARDIAC DISORDER
  16. PLAVIX [Concomitant]
     Indication: CARDIAC DISORDER
     Dosage: 75 MG DAILY
  17. BAYER ASPIRIN [Concomitant]
     Indication: CARDIAC DISORDER
     Dosage: 81 MG DAILY
  18. SIMVASTATIN [Concomitant]
     Indication: BLOOD CHOLESTEROL INCREASED
     Dosage: 20 MG DAILY
  19. BUPROPRION SR [Concomitant]
     Indication: DEPRESSION
     Dosage: 150 MG DAILY
  20. TRAZADONE [Concomitant]
     Indication: INSOMNIA
     Dosage: AT BEDTIME
  21. ALPRAZOLAM [Concomitant]
     Indication: ANXIETY
  22. MULTIVITAMIN [Concomitant]
     Indication: VITAMIN SUPPLEMENTATION
  23. VITAMIN E [Concomitant]
     Indication: VITAMIN SUPPLEMENTATION
  24. FISH OIL [Concomitant]
     Indication: VITAMIN SUPPLEMENTATION
  25. TUMS [Concomitant]
     Indication: VITAMIN SUPPLEMENTATION
  26. BIOTIN [Concomitant]
     Indication: VITAMIN SUPPLEMENTATION
     Dosage: DAILY

REACTIONS (1)
  - Colitis ulcerative [Not Recovered/Not Resolved]
